FAERS Safety Report 6610947-3 (Version None)
Quarter: 2010Q1

REPORT INFORMATION
  Report Type: 
  Country: None (occurrence: None)
  Receive Date: 20100222
  Receipt Date: 20100208
  Transmission Date: 20100710
  Serious: Yes (Other)
  Sender: FDA-Public Use
  Company Number: 238647K09USA

PATIENT
  Age: 46 Year
  Sex: Male
  Weight: 70 kg

DRUGS (4)
  1. REBIF [Suspect]
     Indication: MULTIPLE SCLEROSIS
     Dosage: 44 MCG, 3 IN 1 WEEKS, SUBCUTANEOUS, SUBCUTANEOUS
     Route: 058
     Dates: start: 20081006, end: 20090815
  2. INSULIN HUMALOG (INSULIN LISPRO) [Concomitant]
  3. FOSAMAX [Concomitant]
  4. PROVIGIL [Concomitant]

REACTIONS (1)
  - HYPOGLYCAEMIA UNAWARENESS [None]
